FAERS Safety Report 5361188-1 (Version None)
Quarter: 2007Q2

REPORT INFORMATION
  Report Type: 
  Country: None (occurrence: None)
  Receive Date: 20070530
  Receipt Date: 20070209
  Transmission Date: 20071010
  Serious: No
  Sender: FDA-Public Use
  Company Number: 2006PV026731

PATIENT
  Age: 65 Year
  Sex: Female
  Weight: 86.1834 kg

DRUGS (10)
  1. BYETTA [Suspect]
     Indication: DIABETES MELLITUS NON-INSULIN-DEPENDENT
     Dosage: SEE IMAGE
     Route: 058
     Dates: start: 20061204, end: 20070203
  2. BYETTA [Suspect]
     Indication: DIABETES MELLITUS NON-INSULIN-DEPENDENT
     Dosage: SEE IMAGE
     Route: 058
     Dates: start: 20070204
  3. BYETTA [Suspect]
  4. BYETTA [Suspect]
  5. GLYBURIDE [Concomitant]
  6. METFORMIN HCL [Concomitant]
  7. GLUCOPHAGE [Concomitant]
  8. AMARYL [Concomitant]
  9. THYROID MEDICINE [Concomitant]
  10. HERBAL CINNAMON [Concomitant]

REACTIONS (10)
  - BLOOD GLUCOSE INCREASED [None]
  - CHEST PAIN [None]
  - CONSTIPATION [None]
  - DECREASED APPETITE [None]
  - DIZZINESS [None]
  - DYSPNOEA [None]
  - INJECTION SITE PAIN [None]
  - INJECTION SITE RASH [None]
  - NAUSEA [None]
  - WEIGHT DECREASED [None]
